FAERS Safety Report 5090747-9 (Version None)
Quarter: 2006Q3

REPORT INFORMATION
  Report Type: 
  Country: None (occurrence: None)
  Receive Date: 20060823
  Receipt Date: 20060807
  Transmission Date: 20061208
  Serious: Yes (Hospitalization)
  Sender: FDA-Public Use
  Company Number: DSA_28579_2006

PATIENT
  Age: 39 Year
  Sex: Female

DRUGS (3)
  1. TAVOR [Suspect]
     Dosage: 10 MG ONCE PO
     Route: 048
     Dates: start: 20060806, end: 20060806
  2. CODEINE [Suspect]
     Dosage: 100 MG ONCE PO
     Route: 048
     Dates: start: 20060806, end: 20060806
  3. LIBRIUM [Suspect]
     Dosage: 15 MG ONCE PO
     Route: 048
     Dates: start: 20060806, end: 20060806

REACTIONS (6)
  - FATIGUE [None]
  - MIOSIS [None]
  - OVERDOSE [None]
  - PYREXIA [None]
  - SUICIDE ATTEMPT [None]
  - VOMITING [None]
